FAERS Safety Report 4687465-5 (Version None)
Quarter: 2005Q2

REPORT INFORMATION
  Report Type: 
  Country: None (occurrence: None)
  Receive Date: 20050609
  Receipt Date: 20050609
  Transmission Date: 20051028
  Serious: No
  Sender: FDA-Public Use
  Company Number: None

PATIENT
  Age: 47 Year
  Sex: Female

DRUGS (2)
  1. MORPHINE [Suspect]
  2. CIPRO [Suspect]

REACTIONS (2)
  - PRURITUS [None]
  - RASH [None]
